FAERS Safety Report 8261857-X (Version None)
Quarter: 2012Q2

REPORT INFORMATION
  Report Type: 
  Country: None (occurrence: None)
  Receive Date: 20120405
  Receipt Date: 20120331
  Transmission Date: 20120825
  Serious: Yes (Other)
  Sender: FDA-Public Use
  Company Number: US-TEVA-331374USA

PATIENT
  Sex: Female

DRUGS (1)
  1. PLAN B ONE-STEP [Suspect]
     Indication: POST COITAL CONTRACEPTION
     Dosage: 1.5 MILLIGRAM;
     Route: 048
     Dates: start: 20120331, end: 20120331

REACTIONS (5)
  - HYPERSENSITIVITY [None]
  - TRISMUS [None]
  - DYSARTHRIA [None]
  - PAIN IN EXTREMITY [None]
  - TREMOR [None]
